FAERS Safety Report 9371713 (Version 2)
Quarter: 2013Q3

REPORT INFORMATION
  Report Type: Report from Study
  Country: ES (occurrence: ES)
  Receive Date: 20130627
  Receipt Date: 20130801
  Transmission Date: 20140515
  Serious: Yes (Death)
  Sender: FDA-Public Use
  Company Number: ES-ASTELLAS-2013EU005349

PATIENT
  Age: 83 Year
  Sex: Male
  Weight: 93 kg

DRUGS (6)
  1. BLINDED ENZALUTAMIDE [Suspect]
     Indication: PROSTATE CANCER METASTATIC
     Dosage: 4 UNK, UID/QD
     Route: 048
     Dates: start: 20120228
  2. PANTOPRAZOL [Concomitant]
     Indication: PROPHYLAXIS AGAINST GASTROINTESTINAL ULCER
     Dosage: 20 MG, UID/QD
     Route: 048
     Dates: start: 20110204
  3. AMLODIPINE [Concomitant]
     Indication: HYPERTENSION
     Dosage: 20 MG, UID/QD
     Route: 048
     Dates: start: 20090801
  4. ENALAPRIL [Concomitant]
     Indication: HYPERTENSION
     Dosage: 20 MG, UID/QD
     Route: 048
     Dates: start: 20120925
  5. BROMAZEPAM [Concomitant]
     Indication: ANXIETY
     Dosage: 1.5 MG, UID/QD
     Route: 048
     Dates: start: 20121009
  6. ELIGARD [Concomitant]
     Indication: PROSTATE CANCER
     Dosage: 45 MG, 1 IN 6 M
     Route: 058
     Dates: start: 20100512

REACTIONS (1)
  - Death [Fatal]
